FAERS Safety Report 12556079 (Version 1)
Quarter: 2016Q3

REPORT INFORMATION
  Report Type: Spontaneous
  Country: US (occurrence: US)
  Receive Date: 20160714
  Receipt Date: 20160714
  Transmission Date: 20161109
  Serious: No
  Sender: FDA-Public Use
  Company Number: US-BEH-2016071119

PATIENT
  Sex: Male
  Weight: 111.11 kg

DRUGS (29)
  1. EPIPEN [Concomitant]
     Active Substance: EPINEPHRINE
  2. BROVANA [Concomitant]
     Active Substance: ARFORMOTEROL TARTRATE
  3. LEVAQUIN [Concomitant]
     Active Substance: LEVOFLOXACIN
  4. ELIGARD [Concomitant]
     Active Substance: LEUPROLIDE ACETATE
  5. ZEMAIRA [Suspect]
     Active Substance: .ALPHA.1-PROTEINASE INHIBITOR HUMAN
     Indication: ALPHA-1 ANTI-TRYPSIN DEFICIENCY
  6. FUROSEMIDE. [Concomitant]
     Active Substance: FUROSEMIDE
  7. VITAMIN D3 [Concomitant]
     Active Substance: CHOLECALCIFEROL
  8. CALCIUM [Concomitant]
     Active Substance: CALCIUM
  9. BUDESONIDE. [Concomitant]
     Active Substance: BUDESONIDE
  10. ZEMAIRA [Suspect]
     Active Substance: .ALPHA.1-PROTEINASE INHIBITOR HUMAN
     Indication: ENZYME ABNORMALITY
  11. VENTOLIN [Concomitant]
     Active Substance: ALBUTEROL SULFATE
  12. POTASSIUM [Concomitant]
     Active Substance: POTASSIUM
  13. IRON [Concomitant]
     Active Substance: IRON
  14. OXYGEN. [Concomitant]
     Active Substance: OXYGEN
  15. MAGNESIUM [Concomitant]
     Active Substance: MAGNESIUM
  16. SODIUM CHLORIDE. [Concomitant]
     Active Substance: SODIUM CHLORIDE
  17. NORMAL SALINE [Concomitant]
     Active Substance: SODIUM CHLORIDE
  18. JANTOVEN [Concomitant]
     Active Substance: WARFARIN SODIUM
  19. PANTOPRAZOLE [Concomitant]
     Active Substance: PANTOPRAZOLE SODIUM
  20. BONIVA [Concomitant]
     Active Substance: IBANDRONATE SODIUM
  21. DIPHENHYDRAMINE. [Concomitant]
     Active Substance: DIPHENHYDRAMINE
  22. LMX                                /00033401/ [Concomitant]
  23. COZAAR COMP [Concomitant]
     Active Substance: HYDROCHLOROTHIAZIDE\LOSARTAN POTASSIUM
  24. SPIRIVA [Concomitant]
     Active Substance: TIOTROPIUM BROMIDE MONOHYDRATE
  25. ZEMAIRA [Suspect]
     Active Substance: .ALPHA.1-PROTEINASE INHIBITOR HUMAN
     Indication: THROMBOPHLEBITIS
     Dosage: 60 MG/KG, QW
     Route: 042
  26. ALBUTEROL                          /00139501/ [Concomitant]
     Active Substance: ALBUTEROL
  27. BICALUTAMIDE. [Concomitant]
     Active Substance: BICALUTAMIDE
  28. SUPER B COMPLEX                    /01995301/ [Concomitant]
     Active Substance: CYANOCOBALAMIN\DEXPANTHENOL\NIACINAMIDE\PYRIDOXINE HYDROCHLORIDE\RIBOFLAVIN 5^-PHOSPHATE SODIUM\THIAMINE HYDROCHLORIDE\VITAMIN B COMPLEX
  29. LEXAPRO [Concomitant]
     Active Substance: ESCITALOPRAM OXALATE

REACTIONS (1)
  - Nasopharyngitis [Unknown]
